FAERS Safety Report 5788398-3 (Version None)
Quarter: 2008Q2

REPORT INFORMATION
  Report Type: 
  Country: None (occurrence: None)
  Receive Date: 20080625
  Receipt Date: 20080613
  Transmission Date: 20081010
  Serious: Yes (Other)
  Sender: FDA-Public Use
  Company Number: JP-PFIZER INC-2008051988

PATIENT
  Age: 75 Year
  Sex: Female

DRUGS (15)
  1. CELECOX [Suspect]
     Indication: OSTEOARTHRITIS
     Dosage: DAILY DOSE:200MG
     Route: 048
  2. NORVASC [Suspect]
  3. TOLTERODINE TARTRATE [Suspect]
  4. ALFAROL [Suspect]
  5. LOXONIN [Suspect]
  6. OPALMON [Suspect]
  7. EVISTA [Suspect]
  8. ASPIRIN [Suspect]
  9. ALLOPURINOL [Suspect]
  10. BLOPRESS [Suspect]
  11. SIMVASTATIN [Suspect]
  12. LANSOPRAZOLE [Suspect]
  13. MAGNESIUM OXIDE [Suspect]
  14. CEREKINON [Suspect]
  15. GASTROM [Suspect]

REACTIONS (1)
  - FLATULENCE [None]
